FAERS Safety Report 9894120 (Version 4)
Quarter: 2015Q3

REPORT INFORMATION
  Report Type: Spontaneous
  Country: FR (occurrence: FR)
  Receive Date: 20140213
  Receipt Date: 20150811
  Transmission Date: 20151125
  Serious: Yes (Life-Threatening, Hospitalization)
  Sender: FDA-Public Use
  Company Number: FR-PFIZER INC-2014038159

PATIENT
  Age: 48 Year
  Sex: Male

DRUGS (4)
  1. ADVIL [Suspect]
     Active Substance: IBUPROFEN
     Indication: HEADACHE
     Dosage: UNK
     Route: 048
     Dates: start: 20140112, end: 20140114
  2. ADVIL [Suspect]
     Active Substance: IBUPROFEN
     Indication: PYREXIA
  3. ADVIL [Suspect]
     Active Substance: IBUPROFEN
     Indication: ANALGESIC THERAPY
  4. ADVIL [Suspect]
     Active Substance: IBUPROFEN
     Indication: RHINORRHOEA

REACTIONS (4)
  - Altered state of consciousness [Not Recovered/Not Resolved]
  - Sinusitis [Recovered/Resolved]
  - Superior sagittal sinus thrombosis [Not Recovered/Not Resolved]
  - Meningoencephalitis bacterial [Not Recovered/Not Resolved]

NARRATIVE: CASE EVENT DATE: 20140112
